FAERS Safety Report 12870207 (Version 1)
Quarter: 2016Q4

REPORT INFORMATION
  Report Type: Spontaneous
  Country: US (occurrence: US)
  Receive Date: 20161020
  Receipt Date: 20161020
  Transmission Date: 20170207
  Serious: Yes (Hospitalization)
  Sender: FDA-Public Use
  Company Number: None

PATIENT
  Age: 59 Year
  Sex: Male
  Weight: 105.2 kg

DRUGS (3)
  1. ETOPOSIDE (VP-16) [Suspect]
     Active Substance: ETOPOSIDE
     Dates: end: 20160730
  2. METHOTREXATE. [Suspect]
     Active Substance: METHOTREXATE
     Dates: end: 20160729
  3. CYTARABINE. [Suspect]
     Active Substance: CYTARABINE
     Dates: end: 20160730

REACTIONS (3)
  - Chills [None]
  - Urinary tract infection enterococcal [None]
  - Febrile neutropenia [None]

NARRATIVE: CASE EVENT DATE: 20160808
